FAERS Safety Report 5707487-2 (Version None)
Quarter: 2008Q2

REPORT INFORMATION
  Report Type: 
  Country: None (occurrence: None)
  Receive Date: 20080416
  Receipt Date: 20080404
  Transmission Date: 20081010
  Serious: Yes (Other)
  Sender: FDA-Public Use
  Company Number: JP-PFIZER INC-2008030458

PATIENT
  Age: 84 Year
  Sex: Female

DRUGS (4)
  1. XALATAN [Suspect]
     Indication: GLAUCOMA
     Dosage: FREQ:DAILY
     Route: 031
  2. AMLODIN [Concomitant]
     Route: 048
  3. BLOPRESS [Concomitant]
     Route: 048
  4. DIGOXIN [Concomitant]
     Route: 048

REACTIONS (1)
  - BLINDNESS [None]
